FAERS Safety Report 6296789-X (Version None)
Quarter: 2009Q3

REPORT INFORMATION
  Report Type: 
  Country: None (occurrence: None)
  Receive Date: 20090804
  Receipt Date: 20090721
  Transmission Date: 20100115
  Serious: Yes (Life-Threatening, Hospitalization, Other)
  Sender: FDA-Public Use
  Company Number: US-ROCHE-632504

PATIENT
  Sex: Male
  Weight: 86.2 kg

DRUGS (5)
  1. PEG-INTERFERON A-2A (RO 25-8310) [Suspect]
     Indication: HEPATITIS C
     Dosage: DISPENSED ON JAN 6 2009
     Route: 065
     Dates: start: 20090106
  2. RIBAVIRIN [Suspect]
     Indication: HEPATITIS C
     Route: 065
     Dates: start: 20090106
  3. TRAMADOL HCL [Concomitant]
     Indication: PAIN
     Dosage: DOSE: 50, FREQUENCY: 4 TIMES PER DAY
     Route: 048
  4. HCL [Concomitant]
     Dosage: DOSE: 10, FREQUENCY: DAILY
     Route: 048
  5. LASIX [Concomitant]
     Dosage: DOSE:20, FREQUENCY: DAILY
     Route: 048

REACTIONS (6)
  - ALCOHOL ABUSE [None]
  - FATIGUE [None]
  - HEPATIC CIRRHOSIS [None]
  - NEPHROLITHIASIS [None]
  - PANCYTOPENIA [None]
  - PLATELET COUNT DECREASED [None]
